FAERS Safety Report 10003453 (Version 2)
Quarter: 2014Q1

REPORT INFORMATION
  Report Type: Spontaneous
  Country: US (occurrence: US)
  Receive Date: 20140312
  Receipt Date: 20140312
  Transmission Date: 20141002
  Serious: No
  Sender: FDA-Public Use
  Company Number: US-GILEAD-2012-0058882

PATIENT
  Sex: Female

DRUGS (3)
  1. LETAIRIS [Suspect]
     Indication: PULMONARY HYPERTENSION
     Dosage: 5 MG, UNK
     Route: 048
     Dates: start: 20120507, end: 201206
  2. LETAIRIS [Suspect]
     Indication: SCLERODERMA
  3. TYVASO [Suspect]

REACTIONS (3)
  - Wheezing [Unknown]
  - Throat irritation [Unknown]
  - Dyspnoea [Unknown]
